FAERS Safety Report 10695845 (Version 1)
Quarter: 2015Q1

REPORT INFORMATION
  Report Type: Spontaneous
  Country: GB (occurrence: GB)
  Receive Date: 20150107
  Receipt Date: 20150107
  Transmission Date: 20150721
  Serious: Yes (Other)
  Sender: FDA-Public Use
  Company Number: GB-PFIZER INC-2015000858

PATIENT
  Age: 3 Year
  Sex: Male

DRUGS (3)
  1. ETHOSUXIMIDE. [Suspect]
     Active Substance: ETHOSUXIMIDE
     Dosage: 200 MG, 2X/DAY
     Route: 048
  2. RUFINAMIDE [Concomitant]
     Active Substance: RUFINAMIDE
     Dosage: 300MG BD
     Route: 048
  3. CLONAZEPAM. [Suspect]
     Active Substance: CLONAZEPAM
     Dosage: 100 ?G, 1X/DAY
     Route: 048
     Dates: start: 20141215

REACTIONS (2)
  - Acute kidney injury [Unknown]
  - Blood creatinine increased [Unknown]

NARRATIVE: CASE EVENT DATE: 20141222
